FAERS Safety Report 6612533-8 (Version None)
Quarter: 2010Q1

REPORT INFORMATION
  Report Type: 
  Country: None (occurrence: None)
  Receive Date: 20100303
  Receipt Date: 20100219
  Transmission Date: 20100710
  Serious: Yes (Death, Hospitalization)
  Sender: FDA-Public Use
  Company Number: SE-PFIZER INC-2010016200

PATIENT
  Age: 60 Year
  Sex: Female

DRUGS (15)
  1. SOMATROPIN [Suspect]
     Indication: HYPOPITUITARISM
     Dosage: 0.7 MG, 1X/DAY
     Route: 058
     Dates: start: 19940607
  2. BEHEPAN [Concomitant]
     Indication: VITAMIN B12 DEFICIENCY
     Dosage: UNK
     Dates: start: 20030822
  3. EMGESAN [Concomitant]
     Indication: MAGNESIUM DEFICIENCY
     Dosage: UNK
     Dates: start: 20030915
  4. FOLACIN [Concomitant]
     Indication: MALABSORPTION
     Dosage: UNK
     Dates: start: 19820101
  5. GESTAPURAN [Concomitant]
     Indication: OVARIAN FAILURE
     Dosage: 5 MG EVERY SECOND MONTH
     Dates: start: 19670101
  6. HYDROCORTISONE [Concomitant]
     Indication: ADRENAL INSUFFICIENCY
     Dosage: UNK
     Dates: start: 20010125
  7. IMOVANE [Concomitant]
     Indication: SLEEP DISORDER
     Dosage: 7.5 MG, AS NEEDED
     Dates: start: 19961216
  8. INDERAL [Concomitant]
     Indication: HYPERTENSION
     Dosage: 10 MG, AS NEEDED
     Dates: start: 19981102
  9. LEVOTHYROXINE SODIUM [Concomitant]
     Indication: HYPOTHYROIDISM
     Dosage: UNK
     Dates: start: 20041209
  10. METFORMIN [Concomitant]
     Indication: TYPE 2 DIABETES MELLITUS
     Dosage: 500 MG, 2X/DAY
     Dates: start: 20030603
  11. MICARDIS [Concomitant]
     Indication: HYPERTENSION
     Dosage: UNK
     Dates: start: 20050802
  12. MINIRIN ^AVENTIS PHARMA^ [Concomitant]
     Indication: INAPPROPRIATE ANTIDIURETIC HORMONE SECRETION
     Dosage: 10 UG, AS NEEDED
     Dates: start: 20020319
  13. PROGYNON [Concomitant]
     Indication: OVARIAN FAILURE
     Dosage: UNK
     Dates: start: 19670101
  14. SOBRIL [Concomitant]
     Indication: NEUROSIS
     Dosage: 10 MG, AS NEEDED
     Dates: start: 19970811
  15. ZOLOFT [Concomitant]
     Indication: DEPRESSION
     Dosage: UNK
     Dates: start: 20011215

REACTIONS (3)
  - DEATH [None]
  - DISORIENTATION [None]
  - DIZZINESS [None]
